FAERS Safety Report 23388663 (Version 1)
Quarter: 2024Q1

REPORT INFORMATION
  Report Type: Spontaneous
  Country: US (occurrence: None)
  Receive Date: 20240110
  Receipt Date: 20240110
  Transmission Date: 20240410
  Serious: No
  Sender: FDA-Public Use
  Company Number: None

PATIENT
  Age: 60 Year
  Sex: Male

DRUGS (14)
  1. REPATHA [Suspect]
     Active Substance: EVOLOCUMAB
     Indication: Hyperlipidaemia
     Dosage: 1 ML EVERY 2 WEEKS  SQ?
     Route: 058
     Dates: start: 20230215, end: 20240110
  2. APAP [Concomitant]
     Active Substance: ACETAMINOPHEN
  3. ASPIRIN [Concomitant]
     Active Substance: ASPIRIN
  4. CLOPIDOGREL [Concomitant]
  5. ZETIA [Concomitant]
  6. GLIMEPIRIDE [Concomitant]
  7. LEVOTHYROXINE [Concomitant]
  8. METFORMIN [Concomitant]
     Active Substance: METFORMIN HYDROCHLORIDE
  9. METOCLOPRAMIDE [Concomitant]
  10. METOPROLOL [Concomitant]
  11. NITROSTAT [Concomitant]
     Active Substance: NITROGLYCERIN
  12. OMEPRAZOLE [Concomitant]
  13. ONGLYZA [Concomitant]
  14. VALSARTAN [Concomitant]

REACTIONS (2)
  - Urticaria [None]
  - Therapy interrupted [None]
